FAERS Safety Report 8698832 (Version 2)
Quarter: 2013Q2

REPORT INFORMATION
  Report Type: Spontaneous
  Country: US (occurrence: None)
  Receive Date: 20120418
  Receipt Date: 20120626
  Transmission Date: 20140414
  Serious: Yes (Other)
  Sender: FDA-Public Use
  Company Number: PHHY2011US25803

PATIENT
  Age: 80 Year
  Sex: Female

DRUGS (11)
  1. DIOVAN HCT [Suspect]
     Indication: HYPERTENSION
     Dosage: VALSARTAN 320 AND HYDROCHLOROTHIAZIDE 25, ORAL
     Route: 048
  2. PLAVIX [Concomitant]
  3. ASPIRIN [Concomitant]
  4. NORVASC [Concomitant]
  5. SYNTHROID [Concomitant]
  6. METOPROLOL TARTRATE [Concomitant]
  7. PROTONIX [Concomitant]
  8. PEPCID COMPLETE [Concomitant]
  9. BENADRYL [Concomitant]
  10. TYLENOL (PARACETAMOL) [Concomitant]
  11. GEMFIBROZIL [Concomitant]

REACTIONS (4)
  - HYPOTENSION [None]
  - HEAD DISCOMFORT [None]
  - FEAR [None]
  - BLOOD PRESSURE FLUCTUATION [None]
